FAERS Safety Report 6170954-4 (Version None)
Quarter: 2009Q2

REPORT INFORMATION
  Report Type: 
  Country: None (occurrence: None)
  Receive Date: 20090427
  Receipt Date: 20090427
  Transmission Date: 20091009
  Serious: No
  Sender: FDA-Public Use
  Company Number: None

PATIENT
  Age: 46 Year
  Sex: Female
  Weight: 58 kg

DRUGS (11)
  1. WARFARIN SODIUM [Suspect]
     Indication: HEART VALVE REPLACEMENT
     Dosage: 5MG PO ONCE DAILY OUTPATIENT USE
  2. WARFARIN SODIUM [Suspect]
     Indication: PROPHYLAXIS
     Dosage: 5MG PO ONCE DAILY OUTPATIENT USE
  3. TACROLIMUS [Concomitant]
  4. CELLCEPT [Concomitant]
  5. PREDNISONE [Concomitant]
  6. AMLODIPINE [Concomitant]
  7. LABETALOL HCL [Concomitant]
  8. INSULIN [Concomitant]
  9. SYNTHROID [Concomitant]
  10. NEXIUM [Concomitant]
  11. COLACE [Concomitant]

REACTIONS (2)
  - HEADACHE [None]
  - INTERNATIONAL NORMALISED RATIO INCREASED [None]
